FAERS Safety Report 6497166-9 (Version None)
Quarter: 2009Q4

REPORT INFORMATION
  Report Type: 
  Country: None (occurrence: None)
  Receive Date: 20091215
  Receipt Date: 20090506
  Transmission Date: 20100525
  Serious: No
  Sender: FDA-Public Use
  Company Number: A0782788A

PATIENT
  Age: 71 Year
  Sex: Male

DRUGS (2)
  1. AVODART [Suspect]
     Indication: MICTURITION DISORDER
     Dosage: 1CAP PER DAY
     Route: 048
     Dates: start: 20081215, end: 20090317
  2. LIPITOR [Concomitant]

REACTIONS (2)
  - CHEST DISCOMFORT [None]
  - PALPITATIONS [None]
